FAERS Safety Report 8836269 (Version 1)
Quarter: 2012Q4

REPORT INFORMATION
  Report Type: 
  Country: US (occurrence: US)
  Receive Date: 20121011
  Receipt Date: 20121011
  Transmission Date: 20130627
  Serious: Yes (Other)
  Sender: FDA-Public Use
  Company Number: US-ROCHE-1140363

PATIENT
  Sex: Female
  Weight: 55.3 kg

DRUGS (1)
  1. NUTROPIN AQ [Suspect]
     Indication: TURNER^S SYNDROME
     Route: 058
     Dates: start: 19960718

REACTIONS (2)
  - Hypertension [Unknown]
  - Polydipsia [Unknown]
